FAERS Safety Report 8197055-8 (Version None)
Quarter: 2012Q1

REPORT INFORMATION
  Report Type: 
  Country: None (occurrence: None)
  Receive Date: 20120227
  Receipt Date: 20120104
  Transmission Date: 20120608
  Serious: Yes (Hospitalization)
  Sender: FDA-Public Use
  Company Number: 339193

PATIENT
  Age: 52 Year
  Sex: Female
  Weight: 112.5 kg

DRUGS (4)
  1. LISINOPRIL [Concomitant]
  2. VICTOZA [Suspect]
     Indication: TYPE 2 DIABETES MELLITUS
     Dosage: 0.6 MG, QD, SUBCUTANEOUS, 12 MG, QD, SUBCUTANEOUS, 1.8 MG, QD, SUBCUTANEOUS
     Route: 058
     Dates: start: 20110802, end: 20110816
  3. VICTOZA [Suspect]
     Indication: TYPE 2 DIABETES MELLITUS
     Dosage: 0.6 MG, QD, SUBCUTANEOUS, 12 MG, QD, SUBCUTANEOUS, 1.8 MG, QD, SUBCUTANEOUS
     Route: 058
     Dates: start: 20110718, end: 20110801
  4. VICTOZA [Suspect]
     Indication: TYPE 2 DIABETES MELLITUS
     Dosage: 0.6 MG, QD, SUBCUTANEOUS, 12 MG, QD, SUBCUTANEOUS, 1.8 MG, QD, SUBCUTANEOUS
     Route: 058
     Dates: start: 20110817, end: 20111108

REACTIONS (1)
  - PANCREATITIS ACUTE [None]
